FAERS Safety Report 8571280-6 (Version None)
Quarter: 2012Q3

REPORT INFORMATION
  Report Type: 
  Country: None (occurrence: None)
  Receive Date: 20120806
  Receipt Date: 20120726
  Transmission Date: 20120928
  Serious: Yes (Hospitalization)
  Sender: FDA-Public Use
  Company Number: JP-VERTEX PHARMACEUTICALS INC.-AE-2012-010567

PATIENT
  Age: 50 Year
  Sex: Female

DRUGS (17)
  1. RIBAVIRIN [Concomitant]
     Indication: HEPATITIS C
     Route: 048
     Dates: start: 20120530, end: 20120612
  2. KINDAVATE [Concomitant]
     Route: 061
     Dates: start: 20120608
  3. FAMOTIDINE [Concomitant]
     Route: 048
     Dates: start: 20120702, end: 20120707
  4. PREDNISOLONE [Concomitant]
     Route: 048
     Dates: start: 20120702
  5. PEGINTERFERON ALFA-2B [Concomitant]
     Indication: HEPATITIS C
     Route: 058
     Dates: start: 20120530, end: 20120707
  6. PREDNISOLONE [Concomitant]
     Route: 048
     Dates: start: 20120710
  7. ACETAMINOPHEN [Concomitant]
     Route: 054
     Dates: start: 20120627
  8. AZUNOL GARGLE LIQUID [Concomitant]
     Route: 049
     Dates: start: 20120720
  9. LEVOFLOXACIN [Concomitant]
     Route: 031
     Dates: start: 20120725
  10. RIBAVIRIN [Concomitant]
     Route: 048
     Dates: start: 20120613, end: 20120707
  11. PREDNISOLONE [Concomitant]
     Route: 048
     Dates: start: 20120704
  12. PREDNISOLONE [Concomitant]
     Route: 048
     Dates: start: 20120708
  13. ALLEGRA [Concomitant]
     Route: 048
     Dates: start: 20120607
  14. RABEPRAZOLE SODIUM [Concomitant]
     Route: 048
     Dates: start: 20120708
  15. ALENDRONATE SODIUM [Concomitant]
     Route: 048
     Dates: start: 20120709
  16. TELAVIC (TELAPREVIR) [Suspect]
     Indication: HEPATITIS C
     Route: 048
     Dates: start: 20120530, end: 20120707
  17. PREDNISOLONE [Concomitant]
     Route: 048
     Dates: start: 20120706

REACTIONS (1)
  - RASH [None]
